FAERS Safety Report 17614267 (Version 1)
Quarter: 2020Q2

REPORT INFORMATION
  Report Type: Spontaneous
  Country: US (occurrence: US)
  Receive Date: 20200402
  Receipt Date: 20200402
  Transmission Date: 20200713
  Serious: No
  Sender: FDA-Public Use
  Company Number: US-JNJFOC-20200313919

PATIENT
  Age: 49 Year
  Sex: Male
  Weight: 95.34 kg

DRUGS (1)
  1. MENS ROGAINE EXTRA STRENGTH [Suspect]
     Active Substance: MINOXIDIL
     Indication: ALOPECIA
     Route: 061
     Dates: start: 20200302, end: 20200304

REACTIONS (3)
  - Application site rash [Recovered/Resolved]
  - Application site pruritus [Recovering/Resolving]
  - Application site vesicles [Recovered/Resolved]

NARRATIVE: CASE EVENT DATE: 20200303
